FAERS Safety Report 7763469-0 (Version None)
Quarter: 2011Q3

REPORT INFORMATION
  Report Type: 
  Country: None (occurrence: None)
  Receive Date: 20110920
  Receipt Date: 20110915
  Transmission Date: 20111222
  Serious: Yes (Hospitalization, Congenital Anomaly, Other)
  Sender: FDA-Public Use
  Company Number: US-PFIZER INC-2011177261

PATIENT
  Sex: Male
  Weight: 2.7 kg

DRUGS (2)
  1. MACROBID [Concomitant]
     Dosage: 100 MG, 2X/DAY
     Route: 064
     Dates: start: 20070101
  2. ZOLOFT [Suspect]
     Dosage: UNK
     Route: 064

REACTIONS (18)
  - RESPIRATORY FAILURE [None]
  - DIGEORGE'S SYNDROME [None]
  - PULMONARY ARTERY ATRESIA [None]
  - SCOLIOSIS [None]
  - AORTIC VALVE INCOMPETENCE [None]
  - UMBILICAL HERNIA [None]
  - BRONCHOPULMONARY DYSPLASIA [None]
  - CARDIAC FAILURE CONGESTIVE [None]
  - VENTRICULAR SEPTAL DEFECT [None]
  - ATRIAL SEPTAL DEFECT [None]
  - MITRAL VALVE INCOMPETENCE [None]
  - MATERNAL EXPOSURE DURING PREGNANCY [None]
  - CLEFT PALATE [None]
  - RIGHT VENTRICULAR HYPERTROPHY [None]
  - TRICUSPID VALVE INCOMPETENCE [None]
  - CARDIOMEGALY [None]
  - THYMUS DISORDER [None]
  - CONGENITAL AORTIC ANOMALY [None]
